FAERS Safety Report 4507183-3 (Version None)
Quarter: 2004Q4

REPORT INFORMATION
  Report Type: 
  Country: None (occurrence: None)
  Receive Date: 20041116
  Receipt Date: 20041026
  Transmission Date: 20050328
  Serious: Yes (Other)
  Sender: FDA-Public Use
  Company Number: 601604

PATIENT
  Age: 26 Year
  Sex: Male
  Weight: 54.4316 kg

DRUGS (2)
  1. FEIBA VH IMMUNO [Suspect]
     Indication: SOFT TISSUE HAEMORRHAGE
     Dosage: 13000 IU
  2. NOVOSEVEN [Suspect]
     Indication: SOFT TISSUE HAEMORRHAGE
     Dosage: 8.4 MG

REACTIONS (4)
  - ACUTE MYOCARDIAL INFARCTION [None]
  - CARDIAC FAILURE CONGESTIVE [None]
  - ELECTROCARDIOGRAM T WAVE INVERSION [None]
  - THERAPY NON-RESPONDER [None]
